FAERS Safety Report 10483303 (Version 4)
Quarter: 2014Q4

REPORT INFORMATION
  Report Type: Spontaneous
  Country: GB (occurrence: GB)
  Receive Date: 20140930
  Receipt Date: 20141126
  Transmission Date: 20150528
  Serious: Yes (Death, Other)
  Sender: FDA-Public Use
  Company Number: GB-AUROBINDO-AUR-APL-2013-09679

PATIENT
  Age: 86 Year
  Sex: Female
  Weight: 70 kg

DRUGS (12)
  1. TAZOBACTAM [Suspect]
     Active Substance: TAZOBACTAM
     Indication: LIVER ABSCESS
     Dosage: 4.5 G,UNK,
     Route: 042
     Dates: start: 20131018, end: 20131025
  2. TAZOCIN [Suspect]
     Active Substance: PIPERACILLIN SODIUM\TAZOBACTAM SODIUM
     Indication: SEPSIS
  3. BRINZOLAMIDE [Concomitant]
     Active Substance: BRINZOLAMIDE
     Indication: GLAUCOMA
     Dosage: 1 GTT,ONCE A DAY,
     Route: 061
  4. LATANOPROST. [Concomitant]
     Active Substance: LATANOPROST
     Indication: SEPSIS
  5. LATANOPROST. [Concomitant]
     Active Substance: LATANOPROST
     Indication: GLAUCOMA
     Dosage: 1 GTT,ONCE A DAY,
     Route: 061
     Dates: start: 20131018, end: 20131025
  6. MAGNESIUM GLYCEROPHOSPHATE [Concomitant]
     Active Substance: MAGNESIUM GLYCEROPHOSPHATE
     Indication: SEPSIS
  7. BRINZOLAMIDE [Concomitant]
     Active Substance: BRINZOLAMIDE
     Indication: SEPSIS
  8. METRONIDAZOLE. [Suspect]
     Active Substance: METRONIDAZOLE
     Indication: ABDOMINAL INFECTION
     Dosage: 500 MG,1 DAY
     Route: 042
     Dates: start: 20131025, end: 20131025
  9. TAZOCIN [Suspect]
     Active Substance: PIPERACILLIN SODIUM\TAZOBACTAM SODIUM
     Indication: LIVER ABSCESS
     Dosage: 4.5 G,UNK,
     Route: 042
     Dates: start: 20131018, end: 20131025
  10. MAGNESIUM GLYCEROPHOSPHATE [Concomitant]
     Active Substance: MAGNESIUM GLYCEROPHOSPHATE
     Indication: BLOOD MAGNESIUM DECREASED
     Dosage: 4 MMOL,UNK,
     Route: 048
     Dates: start: 20131018, end: 20131025
  11. PIPERACILLIN AND TAZOBACTAM [Suspect]
     Active Substance: PIPERACILLIN SODIUM\TAZOBACTAM SODIUM
     Indication: LIVER ABSCESS
     Dosage: 4.5 G, UNK
     Route: 042
     Dates: start: 20131018, end: 20131025
  12. TAZOBACTAM [Suspect]
     Active Substance: TAZOBACTAM
     Indication: SEPSIS

REACTIONS (8)
  - Flushing [Unknown]
  - Hepatic lesion [Unknown]
  - Drug administration error [Unknown]
  - Wheezing [Unknown]
  - Anaphylactic reaction [Fatal]
  - Dyspnoea [Unknown]
  - Hypovolaemic shock [Unknown]
  - Swollen tongue [Unknown]

NARRATIVE: CASE EVENT DATE: 20131025
